FAERS Safety Report 25684451 (Version 2)
Quarter: 2025Q3

REPORT INFORMATION
  Report Type: Report from Study
  Country: US (occurrence: US)
  Receive Date: 20250815
  Receipt Date: 20250912
  Transmission Date: 20251020
  Serious: No
  Sender: SUNOVION
  Company Number: US-SUMITOMO PHARMA SWITZERLAND GMBH-2024SPA002260

PATIENT
  Age: 53 Year
  Sex: Male

DRUGS (15)
  1. ORGOVYX [Suspect]
     Active Substance: RELUGOLIX
     Indication: Prostate cancer
     Dosage: 360 MG, SINGLE
     Route: 048
     Dates: start: 20240829, end: 20240829
  2. ORGOVYX [Suspect]
     Active Substance: RELUGOLIX
     Dosage: 120 MG, QD
     Route: 048
     Dates: start: 20240830
  3. ABIRATERONE [Concomitant]
     Active Substance: ABIRATERONE
  4. AMBIEN [Concomitant]
     Active Substance: ZOLPIDEM TARTRATE
  5. VITAMIN D3 [Concomitant]
     Active Substance: CHOLECALCIFEROL
  6. LIPITOR [Concomitant]
     Active Substance: ATORVASTATIN CALCIUM
  7. LOVAZA [Concomitant]
     Active Substance: OMEGA-3-ACID ETHYL ESTERS
  8. PREDNISONE [Concomitant]
     Active Substance: PREDNISONE
  9. VITAMINS [Concomitant]
     Active Substance: VITAMINS
  10. ANTACID [Concomitant]
     Active Substance: ALUMINUM HYDROXIDE\CALCIUM CARBONATE\DIMETHICONE\MAGNESIUM HYDROXIDE
  11. ASPIRIN [Concomitant]
     Active Substance: ASPIRIN
  12. TOPROL XL [Concomitant]
     Active Substance: METOPROLOL SUCCINATE
  13. WEGOVY [Concomitant]
     Active Substance: SEMAGLUTIDE
  14. ZETIA [Concomitant]
     Active Substance: EZETIMIBE
  15. REPATHA [Concomitant]
     Active Substance: EVOLOCUMAB

REACTIONS (11)
  - Anorectal discomfort [Unknown]
  - Biopsy [Unknown]
  - Muscle spasms [Unknown]
  - Arthropod bite [Unknown]
  - Infected bite [Unknown]
  - Muscle atrophy [Unknown]
  - Erythema [Unknown]
  - Arthralgia [Recovering/Resolving]
  - Hot flush [Unknown]
  - Back pain [Unknown]
  - Fatigue [Recovering/Resolving]
